FAERS Safety Report 14333062 (Version 13)
Quarter: 2024Q4

REPORT INFORMATION
  Report Type: Report from Study
  Country: ES (occurrence: ES)
  Receive Date: 20171228
  Receipt Date: 20241112
  Transmission Date: 20250114
  Serious: Yes (Other)
  Sender: SANOFI AVENTIS
  Company Number: ES-SA-2017SA155725

PATIENT
  Age: 54 Year
  Sex: Female
  Weight: 90 kg

DRUGS (8)
  1. ALEMTUZUMAB [Suspect]
     Active Substance: ALEMTUZUMAB
     Indication: Relapsing multiple sclerosis
     Dosage: 12 MG, QD
     Route: 041
     Dates: start: 20170130, end: 20170203
  2. ALEMTUZUMAB [Suspect]
     Active Substance: ALEMTUZUMAB
     Dosage: 12 MG, QD
     Route: 041
     Dates: start: 20180214, end: 20180216
  3. LEVOTHYROXINE SODIUM [Concomitant]
     Active Substance: LEVOTHYROXINE SODIUM
     Dosage: UNK, UNK
     Route: 065
     Dates: start: 20100716
  4. PAROXETINE HYDROCHLORIDE [Concomitant]
     Active Substance: PAROXETINE HYDROCHLORIDE
     Dosage: UNK, UNK
     Route: 065
     Dates: start: 2005
  5. ASPIRIN [Concomitant]
     Active Substance: ASPIRIN
     Dosage: UNK, UNK
     Route: 065
     Dates: start: 20130805
  6. PANTOPRAZOLE SODIUM [Concomitant]
     Active Substance: PANTOPRAZOLE SODIUM
     Dosage: UNK, UNK
     Route: 065
     Dates: start: 2013
  7. TAMSULOSIN HYDROCHLORIDE [Concomitant]
     Active Substance: TAMSULOSIN HYDROCHLORIDE
     Dosage: UNK, UNK
     Route: 065
     Dates: start: 20111229
  8. MAXALT-MLT [Concomitant]
     Active Substance: RIZATRIPTAN BENZOATE
     Dosage: UNK, UNK
     Route: 065
     Dates: start: 20030127

REACTIONS (10)
  - Lymphopenia [Recovered/Resolved]
  - Cataract [Not Recovered/Not Resolved]
  - Visual pathway disorder [Recovered/Resolved]
  - Hepatic steatosis [Not Recovered/Not Resolved]
  - Limb discomfort [Not Recovered/Not Resolved]
  - Decreased appetite [Recovered/Resolved]
  - Gait disturbance [Recovered/Resolved]
  - Dizziness [Recovered/Resolved]
  - Lymphopenia [Recovered/Resolved]
  - Abdominal pain upper [Recovered/Resolved]

NARRATIVE: CASE EVENT DATE: 20170203
